FAERS Safety Report 21504308 (Version 1)
Quarter: 2022Q4

REPORT INFORMATION
  Report Type: Spontaneous
  Country: US (occurrence: US)
  Receive Date: 20221025
  Receipt Date: 20221025
  Transmission Date: 20230113
  Serious: No
  Sender: FDA-Public Use
  Company Number: US-Albireo AB-2022ALB000191

PATIENT
  Age: 26 Year
  Sex: Male

DRUGS (1)
  1. BYLVAY [Suspect]
     Active Substance: ODEVIXIBAT
     Indication: Progressive familial intrahepatic cholestasis
     Dosage: DOSE UNCERTAIN
     Route: 048
     Dates: start: 20220720

REACTIONS (2)
  - Pruritus [Unknown]
  - Skin laceration [Unknown]

NARRATIVE: CASE EVENT DATE: 20220720
